FAERS Safety Report 10300482 (Version 9)
Quarter: 2015Q3

REPORT INFORMATION
  Report Type: Spontaneous
  Country: US (occurrence: US)
  Receive Date: 20140713
  Receipt Date: 20150819
  Transmission Date: 20151125
  Serious: Yes (Hospitalization, Other)
  Sender: FDA-Public Use
  Company Number: US-SA-2014SA089453

PATIENT
  Age: 64 Year
  Sex: Male
  Weight: 81.64 kg

DRUGS (32)
  1. COUMADIN [Concomitant]
     Active Substance: WARFARIN SODIUM
  2. ASPIRIN. [Concomitant]
     Active Substance: ASPIRIN
  3. COMBIVENT [Concomitant]
     Active Substance: ALBUTEROL SULFATE\IPRATROPIUM BROMIDE
  4. MAGNESIUM SULFATE. [Concomitant]
     Active Substance: MAGNESIUM SULFATE
  5. PLAVIX [Suspect]
     Active Substance: CLOPIDOGREL BISULFATE
     Indication: PROPHYLAXIS
     Route: 048
     Dates: start: 20110430, end: 20120105
  6. TYLENOL [Concomitant]
     Active Substance: ACETAMINOPHEN
  7. ECOTRIN [Concomitant]
     Active Substance: ASPIRIN
  8. GABAPENTIN. [Concomitant]
     Active Substance: GABAPENTIN
  9. LOSARTAN. [Concomitant]
     Active Substance: LOSARTAN
     Route: 048
  10. TUMS [Concomitant]
     Active Substance: CALCIUM CARBONATE
  11. PLETAL [Concomitant]
     Active Substance: CILOSTAZOL
  12. COZAAR [Concomitant]
     Active Substance: LOSARTAN POTASSIUM
  13. FENTANYL. [Concomitant]
     Active Substance: FENTANYL
  14. INSULIN [Concomitant]
     Active Substance: INSULIN NOS
  15. LOPRESSOR [Concomitant]
     Active Substance: METOPROLOL TARTRATE
  16. BENADRYL [Concomitant]
     Active Substance: DIPHENHYDRAMINE HYDROCHLORIDE
  17. SIMVASTATIN. [Concomitant]
     Active Substance: SIMVASTATIN
  18. FLAGYL [Concomitant]
     Active Substance: METRONIDAZOLE\METRONIDAZOLE HYDROCHLORIDE
  19. LOVENOX [Concomitant]
     Active Substance: ENOXAPARIN SODIUM
  20. CLONIDINE. [Concomitant]
     Active Substance: CLONIDINE
  21. HALDOL [Concomitant]
     Active Substance: HALOPERIDOL
  22. HYDROCHLOROTHIAZIDE. [Concomitant]
     Active Substance: HYDROCHLOROTHIAZIDE
     Route: 048
  23. SOTALOL. [Concomitant]
     Active Substance: SOTALOL
     Route: 048
  24. ALTACE [Concomitant]
     Active Substance: RAMIPRIL
  25. CARDIZEM [Concomitant]
     Active Substance: DILTIAZEM HYDROCHLORIDE
  26. VITAMIN A [Concomitant]
     Active Substance: VITAMIN A
  27. VITAMIN D [Concomitant]
     Active Substance: CHOLECALCIFEROL
  28. DILTIAZEM [Concomitant]
     Active Substance: DILTIAZEM
     Dosage: ORAL CAPSULE EXTENDED RELEASE
  29. PROTONIX [Concomitant]
     Active Substance: PANTOPRAZOLE SODIUM
  30. PRIMAXIN IV [Concomitant]
     Active Substance: CILASTATIN SODIUM\IMIPENEM
  31. LIPITOR [Concomitant]
     Active Substance: ATORVASTATIN CALCIUM
  32. HEPARIN [Concomitant]
     Active Substance: HEPARIN SODIUM

REACTIONS (3)
  - Multiple injuries [Unknown]
  - Paraplegia [Not Recovered/Not Resolved]
  - Gastrointestinal haemorrhage [Unknown]

NARRATIVE: CASE EVENT DATE: 20120105
